FAERS Safety Report 24466448 (Version 1)
Quarter: 2024Q4

REPORT INFORMATION
  Report Type: Report from Study
  Country: US (occurrence: US)
  Receive Date: 20241018
  Receipt Date: 20241018
  Transmission Date: 20250114
  Serious: No
  Sender: ROCHE
  Company Number: US-ROCHE-3542371

PATIENT
  Age: 39 Year
  Sex: Female

DRUGS (7)
  1. XOLAIR [Suspect]
     Active Substance: OMALIZUMAB
     Indication: Idiopathic urticaria
     Route: 065
  2. DULOXETINE [Concomitant]
     Active Substance: DULOXETINE
  3. HALOPERIDOL [Concomitant]
     Active Substance: HALOPERIDOL
  4. AMOXICILLIN [Concomitant]
     Active Substance: AMOXICILLIN
  5. ATIVAN [Concomitant]
     Active Substance: LORAZEPAM
  6. ERYTHROMYCIN [Concomitant]
     Active Substance: ERYTHROMYCIN
  7. ZITHROMAX [Concomitant]
     Active Substance: AZITHROMYCIN DIHYDRATE

REACTIONS (2)
  - Off label use [Unknown]
  - No adverse event [Unknown]
